FAERS Safety Report 16313589 (Version 1)
Quarter: 2019Q2

REPORT INFORMATION
  Report Type: Spontaneous
  Country: US (occurrence: US)
  Receive Date: 20190409
  Receipt Date: 20190409
  Transmission Date: 20190711
  Serious: Yes (Other)
  Sender: FDA-Public Use
  Company Number: None

PATIENT
  Age: 18 Year
  Sex: Female
  Weight: 81.65 kg

DRUGS (1)
  1. XOLAIR [Suspect]
     Active Substance: OMALIZUMAB
     Indication: DELIRIUM TREMENS
     Route: 058

REACTIONS (2)
  - Oral mucosal blistering [None]
  - Epistaxis [None]

NARRATIVE: CASE EVENT DATE: 20190312
